FAERS Safety Report 7217083-6 (Version None)
Quarter: 2011Q1

REPORT INFORMATION
  Report Type: 
  Country: None (occurrence: None)
  Receive Date: 20110110
  Receipt Date: 20101214
  Transmission Date: 20110831
  Serious: No
  Sender: FDA-Public Use
  Company Number: US-B.I. PHARMACEUTICALS,INC./RIDGEFIELD-2010-BP-14522BP

PATIENT
  Sex: Female

DRUGS (3)
  1. PRADAXA [Suspect]
     Indication: CEREBROVASCULAR ACCIDENT PROPHYLAXIS
     Dosage: 300 MG
     Route: 048
     Dates: start: 20101201
  2. PRADAXA [Suspect]
     Indication: ATRIAL FIBRILLATION
  3. MULTAQ [Suspect]
     Dates: start: 20101201

REACTIONS (4)
  - FAECES DISCOLOURED [None]
  - CONTUSION [None]
  - MUSCLE SPASMS [None]
  - DIARRHOEA [None]
